FAERS Safety Report 16186761 (Version 1)
Quarter: 2019Q2

REPORT INFORMATION
  Report Type: Spontaneous
  Country: PL (occurrence: PL)
  Receive Date: 20190411
  Receipt Date: 20190411
  Transmission Date: 20190711
  Serious: Yes (Death)
  Sender: FDA-Public Use
  Company Number: PL-ELI_LILLY_AND_COMPANY-PL201904004219

PATIENT
  Age: 72 Year
  Sex: Female
  Weight: 73 kg

DRUGS (1)
  1. GEMCITABINE HYDROCHLORIDE. [Suspect]
     Active Substance: GEMCITABINE HYDROCHLORIDE
     Indication: MALIGNANT RESPIRATORY TRACT NEOPLASM
     Dosage: 1400 MG, CYCLICAL
     Route: 042
     Dates: start: 20181228, end: 20181228

REACTIONS (3)
  - Malignant neoplasm progression [Fatal]
  - Colitis ischaemic [Fatal]
  - Gastrointestinal disorder [Fatal]

NARRATIVE: CASE EVENT DATE: 20190301
